FAERS Safety Report 6026641-6 (Version None)
Quarter: 2008Q4

REPORT INFORMATION
  Report Type: 
  Country: None (occurrence: None)
  Receive Date: 20081231
  Receipt Date: 20081216
  Transmission Date: 20090506
  Serious: Yes (Death, Hospitalization)
  Sender: FDA-Public Use
  Company Number: KV200801211

PATIENT
  Age: 76 Year
  Sex: Female

DRUGS (7)
  1. ISOSORBIDE MONONITRATE [Suspect]
     Indication: MYOCARDIAL INFARCTION
     Dosage: 30 MG, QD, ORAL
     Route: 048
     Dates: start: 20081117, end: 20080101
  2. FLUVACCIN (INFLUENZA VIRUS VACCINE POLYVALENT) [Concomitant]
  3. TOPROL-XL [Concomitant]
  4. ALTACE [Concomitant]
  5. FUROSEMIDE [Concomitant]
  6. BELLERGIL (ATROPA BELLADONNA EXTRACT, ERGOTAMINE TARTRATE, PHENOBARBIT [Concomitant]
  7. POTASSIUM CL [Concomitant]

REACTIONS (4)
  - CEREBROVASCULAR ACCIDENT [None]
  - INTRACRANIAL ANEURYSM [None]
  - MYOCARDIAL INFARCTION [None]
  - PRODUCT QUALITY ISSUE [None]
